FAERS Safety Report 8193316-7 (Version None)
Quarter: 2012Q1

REPORT INFORMATION
  Report Type: 
  Country: None (occurrence: None)
  Receive Date: 20120308
  Receipt Date: 20120223
  Transmission Date: 20120608
  Serious: Yes (Death, Hospitalization)
  Sender: FDA-Public Use
  Company Number: TW-MYLANLABS-2012S1004441

PATIENT
  Age: 36 Year
  Sex: Female

DRUGS (16)
  1. BROMAZEPAM [Suspect]
     Indication: INTENTIONAL OVERDOSE
     Dosage: ESTIMATED 60MG
     Route: 048
  2. FLUOXETINE HCL [Suspect]
     Dosage: 20 MG/DAY
     Route: 065
  3. MOCLOBEMIDE [Suspect]
     Route: 065
  4. BROMAZEPAM [Suspect]
     Dosage: 6MG
     Route: 065
  5. PROPRANOLOL [Suspect]
     Indication: INTENTIONAL OVERDOSE
     Dosage: ESTIMATED 300MG
     Route: 048
  6. FLUOXETINE HCL [Suspect]
     Indication: INTENTIONAL OVERDOSE
     Dosage: ESTIMATED 200MG
     Route: 048
  7. ALPRAZOLAM [Suspect]
     Route: 065
  8. PROPRANOLOL [Suspect]
     Route: 065
  9. ESTAZOLAM [Suspect]
     Indication: INTENTIONAL OVERDOSE
     Dosage: ESTIMATED 20MG
     Route: 048
  10. ESTAZOLAM [Suspect]
     Dosage: 2MG
     Route: 065
  11. MIDAZOLAM [Suspect]
     Indication: INTENTIONAL OVERDOSE
     Dosage: ESTIMATED 75MG
     Route: 048
  12. MOCLOBEMIDE [Suspect]
     Indication: INTENTIONAL OVERDOSE
     Dosage: ESTIMATED 4500MG
     Route: 048
  13. ALPRAZOLAM [Suspect]
     Indication: INTENTIONAL OVERDOSE
     Dosage: ESTIMATED 15MG
     Route: 048
  14. LORAZEPAM [Suspect]
     Indication: INTENTIONAL OVERDOSE
     Dosage: ESTIMATED 10MG
     Route: 048
  15. LORAZEPAM [Suspect]
     Dosage: 1MG
     Route: 065
  16. MIDAZOLAM [Suspect]
     Dosage: 7.5MG
     Route: 065

REACTIONS (4)
  - SEROTONIN SYNDROME [None]
  - INTENTIONAL OVERDOSE [None]
  - DISSEMINATED INTRAVASCULAR COAGULATION [None]
  - CIRCULATORY COLLAPSE [None]
